FAERS Safety Report 8573394-3 (Version None)
Quarter: 2012Q3

REPORT INFORMATION
  Report Type: 
  Country: None (occurrence: None)
  Receive Date: 20120806
  Receipt Date: 20120803
  Transmission Date: 20120928
  Serious: Yes (Hospitalization)
  Sender: FDA-Public Use
  Company Number: IT-BRISTOL-MYERS SQUIBB COMPANY-16780520

PATIENT
  Age: 84 Year
  Sex: Female

DRUGS (4)
  1. TRINIPLAS [Concomitant]
     Route: 062
  2. TENORMIN [Concomitant]
     Dosage: TABS
     Route: 048
  3. COUMADIN [Suspect]
     Indication: ATRIAL FIBRILLATION
     Route: 048
     Dates: start: 20090101, end: 20120703
  4. MODURETIC 5-50 [Concomitant]
     Indication: HYPERTENSION
     Dosage: 1DF= 5MG + 50MG TABS (1 DOSE)
     Route: 048
     Dates: start: 20090101, end: 20120703

REACTIONS (2)
  - ANAEMIA [None]
  - HYPOCOAGULABLE STATE [None]
